FAERS Safety Report 19205635 (Version 2)
Quarter: 2022Q3

REPORT INFORMATION
  Report Type: Spontaneous
  Country: US (occurrence: None)
  Receive Date: 20210503
  Receipt Date: 20220907
  Transmission Date: 20221027
  Serious: No
  Sender: FDA-Public Use
  Company Number: US-FARMAPROD-202101-0112

PATIENT
  Sex: Female

DRUGS (9)
  1. OXERVATE [Suspect]
     Active Substance: CENEGERMIN-BKBJ
     Indication: Neurotrophic keratopathy
     Route: 047
     Dates: start: 20201130, end: 20210216
  2. OXERVATE [Suspect]
     Active Substance: CENEGERMIN-BKBJ
     Indication: Ulcerative keratitis
     Route: 047
     Dates: start: 20210714
  3. OXERVATE [Suspect]
     Active Substance: CENEGERMIN-BKBJ
     Indication: Corneal pigmentation
  4. OXERVATE [Suspect]
     Active Substance: CENEGERMIN-BKBJ
     Indication: Photokeratitis
  5. ESOMEPRAZOLE MAGNESIUM [Concomitant]
     Active Substance: ESOMEPRAZOLE MAGNESIUM
  6. METOPROLOL SUCCINATE [Concomitant]
     Active Substance: METOPROLOL SUCCINATE
  7. LOTEPREDNOL ETABONATE [Concomitant]
     Active Substance: LOTEPREDNOL ETABONATE
  8. MOXIFLOXACIN [Concomitant]
     Active Substance: MOXIFLOXACIN
  9. EPLERENONE [Concomitant]
     Active Substance: EPLERENONE

REACTIONS (5)
  - Therapy interrupted [Unknown]
  - Headache [Unknown]
  - Eye pain [Unknown]
  - Eye irritation [Unknown]
  - Eye pain [Unknown]
